FAERS Safety Report 22020320 (Version 6)
Quarter: 2023Q4

REPORT INFORMATION
  Report Type: Other
  Country: CA (occurrence: None)
  Receive Date: 20230222
  Receipt Date: 20231005
  Transmission Date: 20240110
  Serious: Yes (Other)
  Sender: FDA-Public Use
  Company Number: CA-ROCHE-2738629

PATIENT
  Sex: Female
  Weight: 100.57 kg

DRUGS (5)
  1. OCREVUS [Suspect]
     Active Substance: OCRELIZUMAB
     Indication: Relapsing-remitting multiple sclerosis
     Dosage: 300 MG AT DAY 0 AND 14, THEN 600 MG EVERY 6 MONTH.?SUBSEQUENT DOSE ON 27/JAN/2022
     Route: 042
     Dates: start: 20200711
  2. OCREVUS [Suspect]
     Active Substance: OCRELIZUMAB
     Route: 042
  3. PREDNISONE [Concomitant]
     Active Substance: PREDNISONE
  4. LISINOPRIL [Concomitant]
     Active Substance: LISINOPRIL
     Route: 048
  5. BOTOX [Concomitant]
     Active Substance: ONABOTULINUMTOXINA
     Indication: Bladder spasm

REACTIONS (22)
  - Hydronephrosis [Unknown]
  - Musculoskeletal stiffness [Recovering/Resolving]
  - Limb discomfort [Recovering/Resolving]
  - Surgery [Recovering/Resolving]
  - Gait disturbance [Recovering/Resolving]
  - Pain [Recovering/Resolving]
  - Burning sensation [Recovering/Resolving]
  - Sleep disorder [Recovering/Resolving]
  - Urinary incontinence [Recovering/Resolving]
  - Back pain [Recovering/Resolving]
  - Fatigue [Not Recovered/Not Resolved]
  - Dysphagia [Recovering/Resolving]
  - Dysphonia [Not Recovered/Not Resolved]
  - Dry throat [Not Recovered/Not Resolved]
  - Coccydynia [Not Recovered/Not Resolved]
  - Blood pressure increased [Unknown]
  - Anxiety [Unknown]
  - Memory impairment [Unknown]
  - Urinary tract infection [Unknown]
  - Gastrointestinal bacterial infection [Unknown]
  - Influenza [Unknown]
  - Intermittent claudication [Unknown]
